FAERS Safety Report 4856544-1 (Version None)
Quarter: 2005Q4

REPORT INFORMATION
  Report Type: 
  Country: None (occurrence: None)
  Receive Date: 20051219
  Receipt Date: 20050104
  Transmission Date: 20060501
  Serious: No
  Sender: FDA-Public Use
  Company Number: US-GLAXOSMITHKLINE-A0539190A

PATIENT
  Age: 63 Year
  Sex: Male

DRUGS (12)
  1. NICODERM CQ [Suspect]
     Dates: start: 20050101, end: 20050102
  2. NICODERM CQ [Suspect]
  3. NEURONTIN [Concomitant]
  4. ZOLOFT [Concomitant]
  5. PLAVIX [Concomitant]
  6. HYDROCODONE [Concomitant]
  7. CLORAZEPATE DIPOTASSIUM [Concomitant]
  8. GUAIFEN [Concomitant]
  9. RANITIDINE [Concomitant]
  10. PENTOXIFYLLINE [Concomitant]
  11. HUMALOG [Concomitant]
  12. LANTUS [Concomitant]

REACTIONS (2)
  - HEADACHE [None]
  - INTENTIONAL DRUG MISUSE [None]
